FAERS Safety Report 20580329 (Version 2)
Quarter: 2022Q1

REPORT INFORMATION
  Report Type: Other
  Country: GB (occurrence: GB)
  Receive Date: 20220311
  Receipt Date: 20220322
  Transmission Date: 20220423
  Serious: Yes (Other)
  Sender: FDA-Public Use
  Company Number: None

PATIENT
  Age: 51 Year
  Sex: Female

DRUGS (4)
  1. FLUOXETINE [Interacting]
     Active Substance: FLUOXETINE HYDROCHLORIDE
     Indication: Product used for unknown indication
     Dosage: UNK; CAPSULES
     Route: 048
     Dates: start: 202003, end: 202008
  2. FLUOXETINE [Interacting]
     Active Substance: FLUOXETINE HYDROCHLORIDE
     Indication: Depressed mood
     Dosage: 20 MILLIGRAM,QD, ONCE A DAY
     Route: 048
     Dates: start: 202003, end: 202008
  3. TAMOXIFEN [Interacting]
     Active Substance: TAMOXIFEN
     Indication: Breast cancer
     Dosage: UNK
     Route: 048
     Dates: start: 201506, end: 202008
  4. TAMOXIFEN [Interacting]
     Active Substance: TAMOXIFEN
     Dosage: 20 MILLIGRAM, QD, ONCE A DAY
     Route: 048
     Dates: start: 201506, end: 202008

REACTIONS (3)
  - Breast cancer recurrent [Not Recovered/Not Resolved]
  - Breast cancer metastatic [Not Recovered/Not Resolved]
  - Drug interaction [Unknown]

NARRATIVE: CASE EVENT DATE: 20200301
